FAERS Safety Report 12887108 (Version 8)
Quarter: 2016Q4

REPORT INFORMATION
  Report Type: Spontaneous
  Country: FI (occurrence: FI)
  Receive Date: 20161026
  Receipt Date: 20161222
  Transmission Date: 20170207
  Serious: Yes (Hospitalization)
  Sender: FDA-Public Use
  Company Number: FI-SA-2016SA192459

PATIENT
  Age: 35 Year
  Sex: Female

DRUGS (3)
  1. LEMTRADA [Suspect]
     Active Substance: ALEMTUZUMAB
     Indication: RELAPSING-REMITTING MULTIPLE SCLEROSIS
     Route: 042
     Dates: start: 201510
  2. THYROXIN [Concomitant]
     Active Substance: LEVOTHYROXINE
     Indication: HYPOTHYROIDISM
  3. MIRTAZAPINE. [Concomitant]
     Active Substance: MIRTAZAPINE

REACTIONS (7)
  - Leukopenia [Recovered/Resolved]
  - Autoimmune hepatitis [Unknown]
  - Blood thromboplastin [Recovered/Resolved]
  - Hepatotoxicity [Unknown]
  - Alanine aminotransferase increased [Recovering/Resolving]
  - Fatigue [Unknown]
  - Aspartate aminotransferase increased [Recovering/Resolving]
